FAERS Safety Report 8774218 (Version 1)
Quarter: 2012Q4

REPORT INFORMATION
  Report Type: 
  Country: US (occurrence: US)
  Receive Date: 20120907
  Receipt Date: 20120907
  Transmission Date: 20130627
  Serious: Yes (Death)
  Sender: FDA-Public Use
  Company Number: US-COVIDIEN/TYCO HEALTHCARE/MALLINCKRODT-T201203347

PATIENT
  Age: 74 Year
  Sex: Female

DRUGS (8)
  1. EXALGO EXTENDED RELEASE [Suspect]
     Indication: OSTEOARTHRITIS
     Dosage: 16 mg, qd
     Dates: start: 201208
  2. EXALGO EXTENDED RELEASE [Suspect]
     Indication: OSTEOPOROSIS
     Dosage: 12 mg, qd
     Dates: start: 201205, end: 201208
  3. EXALGO EXTENDED RELEASE [Suspect]
     Indication: BACK PAIN
  4. NORCO [Concomitant]
     Indication: BREAKTHROUGH PAIN
  5. CLONOPIN [Concomitant]
  6. QVAR [Concomitant]
  7. PROAIR                             /00972202/ [Concomitant]
  8. LASIX                              /00032601/ [Concomitant]

REACTIONS (1)
  - Death [Fatal]
